FAERS Safety Report 19787118 (Version 3)
Quarter: 2022Q2

REPORT INFORMATION
  Report Type: Spontaneous
  Country: US (occurrence: None)
  Receive Date: 20210903
  Receipt Date: 20220401
  Transmission Date: 20220721
  Serious: Yes (Other)
  Sender: FDA-Public Use
  Company Number: 2021A704838

PATIENT
  Age: 72 Year
  Sex: Female
  Weight: 77.1 kg

DRUGS (43)
  1. NEXIUM [Suspect]
     Active Substance: ESOMEPRAZOLE MAGNESIUM
     Indication: Gastrooesophageal reflux disease
     Dosage: FOR VARIOUS DATES AND YEARS
     Route: 048
  2. NEXIUM [Suspect]
     Active Substance: ESOMEPRAZOLE MAGNESIUM
     Indication: Gastrooesophageal reflux disease
     Route: 048
     Dates: start: 2012, end: 2015
  3. PRILOSEC [Suspect]
     Active Substance: OMEPRAZOLE MAGNESIUM
     Indication: Gastrooesophageal reflux disease
     Dosage: FOR VARIOUS DATES AND YEARS
     Route: 048
  4. PRILOSEC [Suspect]
     Active Substance: OMEPRAZOLE MAGNESIUM
     Indication: Gastrooesophageal reflux disease
     Dosage: GENERIC
     Route: 065
     Dates: start: 2016, end: 2017
  5. PREVACID [Suspect]
     Active Substance: LANSOPRAZOLE
     Indication: Gastrooesophageal reflux disease
     Dosage: FOR VARIOUS DATES AND YEARS
     Route: 065
  6. PREVACID [Suspect]
     Active Substance: LANSOPRAZOLE
     Indication: Gastrooesophageal reflux disease
     Route: 065
     Dates: start: 2016
  7. RANEXA [Concomitant]
     Active Substance: RANOLAZINE
  8. ASPIRIN [Concomitant]
     Active Substance: ASPIRIN
  9. COLACE [Concomitant]
     Active Substance: DOCUSATE SODIUM
  10. NORVASC [Concomitant]
     Active Substance: AMLODIPINE BESYLATE
  11. BUSPAR [Concomitant]
     Active Substance: BUSPIRONE HYDROCHLORIDE
  12. PRADAXA [Concomitant]
     Active Substance: DABIGATRAN ETEXILATE MESYLATE
  13. PLAVIX [Concomitant]
     Active Substance: CLOPIDOGREL BISULFATE
  14. TYLENOL [Concomitant]
     Active Substance: ACETAMINOPHEN
  15. NITROGLYCERIN [Concomitant]
     Active Substance: NITROGLYCERIN
  16. AMLODIPINE [Concomitant]
     Active Substance: AMLODIPINE BESYLATE
  17. METOPROLOL TARTRATE [Concomitant]
     Active Substance: METOPROLOL TARTRATE
  18. CIPROFLOXACIN [Concomitant]
     Active Substance: CIPROFLOXACIN
  19. TOPROL XL [Concomitant]
     Active Substance: METOPROLOL SUCCINATE
  20. CIPRO [Concomitant]
     Active Substance: CIPROFLOXACIN HYDROCHLORIDE
  21. LIVALO [Concomitant]
     Active Substance: PITAVASTATIN CALCIUM
  22. SYMBICORT [Concomitant]
     Active Substance: BUDESONIDE\FORMOTEROL FUMARATE DIHYDRATE
  23. ACETAMINOPHEN [Concomitant]
     Active Substance: ACETAMINOPHEN
  24. FUROSEMIDE [Concomitant]
     Active Substance: FUROSEMIDE
  25. LEVOFLOXACIN [Concomitant]
     Active Substance: LEVOFLOXACIN
  26. AVELOX [Concomitant]
     Active Substance: MOXIFLOXACIN HYDROCHLORIDE
  27. BENAZEPRIL [Concomitant]
     Active Substance: BENAZEPRIL HYDROCHLORIDE
     Dates: start: 20100519
  28. ALLOPURINOL [Concomitant]
     Active Substance: ALLOPURINOL
  29. SIMVASTATIN [Concomitant]
     Active Substance: SIMVASTATIN
  30. TRAMADOL [Concomitant]
     Active Substance: TRAMADOL
  31. AZITHROMYCIN [Concomitant]
     Active Substance: AZITHROMYCIN
  32. LOSARTAN [Concomitant]
     Active Substance: LOSARTAN
  33. DOXYCYCLINE [Concomitant]
     Active Substance: DOXYCYCLINE
  34. AMBROXOL HYDROCHLORIDE/SULFAMETHOXAZOLE/TRIMETHOPRIM [Concomitant]
  35. MELOXICAM [Concomitant]
     Active Substance: MELOXICAM
     Dates: start: 20170622
  36. GABAPENTIN [Concomitant]
     Active Substance: GABAPENTIN
     Dates: start: 20170125
  37. DIAZEPAM [Concomitant]
     Active Substance: DIAZEPAM
     Dates: start: 20170106
  38. CALCITRIOL [Concomitant]
     Active Substance: CALCITRIOL
     Dates: start: 20121002
  39. LYRICA [Concomitant]
     Active Substance: PREGABALIN
     Dates: start: 20100331
  40. VENTOLIN [Concomitant]
     Active Substance: ALBUTEROL SULFATE
     Dates: start: 20100331
  41. RANITIDINE [Concomitant]
     Active Substance: RANITIDINE
     Dates: start: 20100328
  42. TEMAZEPAM [Concomitant]
     Active Substance: TEMAZEPAM
     Dates: start: 20100331
  43. LANTUS [Concomitant]
     Active Substance: INSULIN GLARGINE
     Dates: start: 20100331

REACTIONS (7)
  - Acute kidney injury [Not Recovered/Not Resolved]
  - Chronic kidney disease [Not Recovered/Not Resolved]
  - Renal failure [Unknown]
  - Nephrogenic anaemia [Unknown]
  - Hyperkalaemia [Unknown]
  - Renal tubular necrosis [Unknown]
  - Rebound acid hypersecretion [Unknown]

NARRATIVE: CASE EVENT DATE: 20130101
